FAERS Safety Report 8933892 (Version 1)
Quarter: 2012Q4

REPORT INFORMATION
  Report Type: 
  Country: CO (occurrence: CO)
  Receive Date: 20121129
  Receipt Date: 20121129
  Transmission Date: 20130627
  Serious: No
  Sender: FDA-Public Use
  Company Number: CO-B.I. PHARMACEUTICALS,INC./RIDGEFIELD-2012-RA-00344RA

PATIENT
  Age: 65 Year
  Sex: Female

DRUGS (4)
  1. TRAYENTA [Suspect]
     Indication: DIABETES MELLITUS
     Dosage: 5 mg
     Route: 048
     Dates: start: 20120701, end: 20120701
  2. MICARDIS PLUS [Suspect]
     Indication: HYPERTENSION
     Dosage: 80/12.5 mg daily
     Route: 048
  3. VENASTAT [Suspect]
     Indication: VENOUS INSUFFICIENCY
     Dosage: 50 mg
     Route: 048
  4. CALTRATE [Concomitant]
     Dosage: 1 tablet daily
     Route: 048

REACTIONS (1)
  - Oedema mouth [Recovered/Resolved]
